FAERS Safety Report 9290332 (Version 1)
Quarter: 2013Q2

REPORT INFORMATION
  Report Type: Spontaneous
  Country: US (occurrence: US)
  Receive Date: 20130515
  Receipt Date: 20130515
  Transmission Date: 20140414
  Serious: No
  Sender: FDA-Public Use
  Company Number: US-PFIZER INC-2013149721

PATIENT
  Age: 67 Year
  Sex: Female
  Weight: 77.1 kg

DRUGS (1)
  1. GABAPENTIN [Suspect]
     Dosage: 300 MG, 3X/DAY
     Dates: start: 201210

REACTIONS (2)
  - Diplopia [Not Recovered/Not Resolved]
  - Vision blurred [Not Recovered/Not Resolved]
